FAERS Safety Report 17582239 (Version 1)
Quarter: 2020Q1

REPORT INFORMATION
  Report Type: Other
  Country: US (occurrence: US)
  Receive Date: 20200325
  Receipt Date: 20200325
  Transmission Date: 20200409
  Serious: No
  Sender: FDA-Public Use
  Company Number: US-MAYNE PHARMA-2019MYN000434

PATIENT

DRUGS (2)
  1. TAMOXIFEN CITRATE. [Suspect]
     Active Substance: TAMOXIFEN CITRATE
     Indication: BREAST CANCER
     Dosage: 20 MG, QD
     Route: 048
     Dates: start: 20190415, end: 20190422
  2. TAMOXIFEN CITRATE. [Suspect]
     Active Substance: TAMOXIFEN CITRATE
     Dosage: 20 MG, QD
     Route: 048
     Dates: start: 2019

REACTIONS (9)
  - Fatigue [Not Recovered/Not Resolved]
  - Back pain [Unknown]
  - Myalgia [Not Recovered/Not Resolved]
  - Pain in extremity [Unknown]
  - Product quality issue [Unknown]
  - Muscle spasms [Unknown]
  - Product substitution issue [Unknown]
  - Product cleaning inadequate [Unknown]
  - Product process control issue [Unknown]

NARRATIVE: CASE EVENT DATE: 2019
